FAERS Safety Report 24209992 (Version 1)
Quarter: 2024Q3

REPORT INFORMATION
  Report Type: Spontaneous
  Country: US (occurrence: None)
  Receive Date: 20240813
  Receipt Date: 20240813
  Transmission Date: 20241017
  Serious: No
  Sender: Public
  Company Number: None

PATIENT
  Sex: Female

DRUGS (1)
  1. JAKAFI [Suspect]
     Active Substance: RUXOLITINIB
     Indication: Myelofibrosis
     Dosage: 15 MG TWICE A DAY ORAL ?
     Route: 048
     Dates: start: 20221010

REACTIONS (3)
  - Dysphagia [None]
  - Somnolence [None]
  - Wrong technique in product usage process [None]
